FAERS Safety Report 8979488 (Version 1)
Quarter: 2012Q4

REPORT INFORMATION
  Report Type: 
  Country: FR (occurrence: FR)
  Receive Date: 20121221
  Receipt Date: 20121221
  Transmission Date: 20130627
  Serious: Yes (Life-Threatening, Other)
  Sender: FDA-Public Use
  Company Number: FR-009507513-2012SP025802

PATIENT
  Age: 33 Year
  Sex: Female
  Weight: 110 kg

DRUGS (5)
  1. ESMERON [Suspect]
     Indication: GENERAL ANAESTHESIA
     Dosage: 1.2 mg/kg, Once
     Route: 042
     Dates: start: 20120515, end: 20120515
  2. SUFENTA [Suspect]
     Indication: GENERAL ANAESTHESIA
     Dosage: 0.3 mg/kg, Once
     Route: 042
     Dates: start: 20120515, end: 20120515
  3. DIPRIVAN [Suspect]
     Indication: GENERAL ANAESTHESIA
     Dosage: 3 mg/kg, Once
     Route: 042
     Dates: start: 20120515, end: 20120515
  4. KETAMINE HYDROCHLORIDE [Suspect]
     Indication: GENERAL ANAESTHESIA
     Dosage: 0.5 mg/kg, Once
     Route: 042
     Dates: start: 20120515, end: 20120515
  5. XYLOCAINE [Suspect]
     Indication: GENERAL ANAESTHESIA
     Dosage: 0.5 mg/kg, Once
     Route: 042
     Dates: start: 20120515, end: 20120515

REACTIONS (4)
  - Anaphylactic shock [Recovered/Resolved]
  - Urticaria [Recovered/Resolved]
  - Bronchospasm [Recovered/Resolved]
  - Hypotension [Recovered/Resolved]
